FAERS Safety Report 9530308 (Version 2)
Quarter: 2013Q3

REPORT INFORMATION
  Report Type: Report from Study
  Country: CO (occurrence: CO)
  Receive Date: 20130917
  Receipt Date: 20130924
  Transmission Date: 20140515
  Serious: Yes (Disabling, Other)
  Sender: FDA-Public Use
  Company Number: CO-ROCHE-1276522

PATIENT
  Age: 67 Year
  Sex: Male

DRUGS (2)
  1. LUCENTIS [Suspect]
     Indication: MACULAR DEGENERATION
     Route: 050
     Dates: start: 20130226
  2. ACETAMINOPHEN [Concomitant]
     Indication: PAIN

REACTIONS (2)
  - Blindness unilateral [Not Recovered/Not Resolved]
  - Hypertension [Not Recovered/Not Resolved]
